FAERS Safety Report 21947534 (Version 1)
Quarter: 2023Q1

REPORT INFORMATION
  Report Type: Spontaneous
  Country: US (occurrence: US)
  Receive Date: 20230202
  Receipt Date: 20230202
  Transmission Date: 20230418
  Serious: No
  Sender: FDA-Public Use
  Company Number: US-drreddys-SPO/USA/23/0159534

PATIENT
  Age: 73 Year
  Sex: Female

DRUGS (7)
  1. LENALIDOMIDE [Suspect]
     Active Substance: LENALIDOMIDE
     Indication: Plasma cell myeloma in remission
     Dosage: TAKE 1 CAPSULE WHOLE BY MOUTH WITH WATER DAILY. DO NOT BREAK, CHEW OR OPEN
     Route: 048
     Dates: start: 20221107
  2. AMLODIPINE BESYLATE [Concomitant]
     Active Substance: AMLODIPINE BESYLATE
     Indication: Product used for unknown indication
  3. DICYCLOMINE HYDROCHLORIDE [Concomitant]
     Active Substance: DICYCLOMINE HYDROCHLORIDE
     Indication: Product used for unknown indication
  4. CREON CPE 36000-11UNIT [Concomitant]
     Indication: Product used for unknown indication
     Dosage: 36000-11UNIT
  5. LASIX TAB 80MG [Concomitant]
     Indication: Product used for unknown indication
  6. NORTRIPTYLIN CAP 75MG [Concomitant]
     Indication: Product used for unknown indication
  7. PREDNISONE [Concomitant]
     Active Substance: PREDNISONE
     Indication: Product used for unknown indication

REACTIONS (1)
  - Abdominal pain upper [Unknown]
